FAERS Safety Report 21961618 (Version 1)
Quarter: 2023Q1

REPORT INFORMATION
  Report Type: Report from Study
  Country: CA (occurrence: CA)
  Receive Date: 20230207
  Receipt Date: 20230207
  Transmission Date: 20230418
  Serious: Yes (Other)
  Sender: FDA-Public Use
  Company Number: CA-002147023-NVSC2023CA022061

PATIENT
  Age: 51 Year
  Sex: Male

DRUGS (13)
  1. AMLODIPINE [Suspect]
     Active Substance: AMLODIPINE BESYLATE
     Indication: Secondary progressive multiple sclerosis
     Dosage: 5 MG, QD
     Route: 065
  2. RABEPRAZOLE SODIUM [Suspect]
     Active Substance: RABEPRAZOLE SODIUM
     Indication: Secondary progressive multiple sclerosis
     Dosage: 20 MG, QD
     Route: 065
  3. IRBESARTAN [Suspect]
     Active Substance: IRBESARTAN
     Indication: Secondary progressive multiple sclerosis
     Dosage: 150 MG, QD
     Route: 065
  4. BACLOFEN [Suspect]
     Active Substance: BACLOFEN
     Indication: Secondary progressive multiple sclerosis
     Dosage: 10 MG, TID
     Route: 065
  5. OXYBUTYNIN [Concomitant]
     Active Substance: OXYBUTYNIN
     Indication: Micturition urgency
     Dosage: 5 MG, QD
     Route: 065
  6. MIRABEGRON [Concomitant]
     Active Substance: MIRABEGRON
     Indication: Micturition urgency
     Dosage: UNK
     Route: 065
  7. MYRBETRIQ [Concomitant]
     Active Substance: MIRABEGRON
     Indication: Product used for unknown indication
     Dosage: 50 MG (EXTENDED RELEASE)
     Route: 065
  8. WELLBUTRIN [Concomitant]
     Active Substance: BUPROPION HYDROCHLORIDE
     Indication: Product used for unknown indication
     Dosage: 300 MG, QD (XL)
     Route: 065
  9. MEXILETINE [Concomitant]
     Active Substance: MEXILETINE
     Indication: Product used for unknown indication
     Dosage: 300 MG, TID
     Route: 065
  10. DALFAMPRIDINE [Concomitant]
     Active Substance: DALFAMPRIDINE
     Indication: Product used for unknown indication
     Dosage: 10 MG, QD (EXTENDED RELEASE, ADJUSTED FOR RENAL DOSING)
     Route: 065
  11. FLOMAX [Concomitant]
     Active Substance: TAMSULOSIN HYDROCHLORIDE
     Indication: Product used for unknown indication
     Dosage: 0.4 MG, QD
     Route: 065
  12. GABAPENTIN [Concomitant]
     Active Substance: GABAPENTIN
     Indication: Product used for unknown indication
     Dosage: 100 MG, BID
     Route: 065
  13. GABAPENTIN [Concomitant]
     Active Substance: GABAPENTIN
     Dosage: 100 MG, QID
     Route: 065

REACTIONS (13)
  - Neurogenic bladder [Unknown]
  - Urinary retention [Unknown]
  - Muscular dystrophy [Unknown]
  - Dry mouth [Unknown]
  - Constipation [Unknown]
  - Muscle spasticity [Unknown]
  - Arthralgia [Unknown]
  - Paraesthesia [Unknown]
  - Hypoaesthesia [Unknown]
  - Neuralgia [Unknown]
  - Clonus [Unknown]
  - Fatigue [Unknown]
  - Off label use [Unknown]

NARRATIVE: CASE EVENT DATE: 20221121
